FAERS Safety Report 16024424 (Version 1)
Quarter: 2019Q1

REPORT INFORMATION
  Report Type: Spontaneous
  Country: US (occurrence: US)
  Receive Date: 20190301
  Receipt Date: 20190301
  Transmission Date: 20190418
  Serious: No
  Sender: FDA-Public Use
  Company Number: PHEH2019US009228

PATIENT
  Sex: Female

DRUGS (2)
  1. IBRANCE [Suspect]
     Active Substance: PALBOCICLIB
     Indication: BREAST CANCER
     Dosage: 125 MG, QD (21 DAYS)
     Route: 048
     Dates: start: 20180308
  2. LETROZOLE. [Suspect]
     Active Substance: LETROZOLE
     Indication: BREAST CANCER
     Dosage: UNK UNK, QD
     Route: 065

REACTIONS (5)
  - Back pain [Unknown]
  - Discomfort [Unknown]
  - Arthralgia [Unknown]
  - Pelvic pain [Unknown]
  - Musculoskeletal chest pain [Unknown]
